FAERS Safety Report 9961725 (Version 1)
Quarter: 2014Q1

REPORT INFORMATION
  Report Type: Report from Study
  Country: US (occurrence: US)
  Receive Date: 20140305
  Receipt Date: 20140305
  Transmission Date: 20141002
  Serious: No
  Sender: FDA-Public Use
  Company Number: US-ABBVIE-13P-163-1113108-00

PATIENT
  Sex: Male

DRUGS (4)
  1. HUMIRA [Suspect]
     Indication: RHEUMATOID ARTHRITIS
     Dates: start: 2012
  2. SYNTHROID [Concomitant]
     Indication: THYROID DISORDER
     Route: 048
  3. SYNTHROID [Concomitant]
  4. SYNTHROID [Concomitant]

REACTIONS (4)
  - Bronchitis [Recovering/Resolving]
  - Injection site pain [Recovering/Resolving]
  - Thyroid function test abnormal [Unknown]
  - Arthritis [Unknown]
